FAERS Safety Report 5127487-3 (Version None)
Quarter: 2006Q4

REPORT INFORMATION
  Report Type: 
  Country: None (occurrence: None)
  Receive Date: 20061011
  Receipt Date: 20060925
  Transmission Date: 20070319
  Serious: Yes (Death)
  Sender: FDA-Public Use
  Company Number: 2006JP002280

PATIENT

DRUGS (2)
  1. PROGRAF [Suspect]
     Indication: LIVER TRANSPLANT
     Dosage: UNK, UNK, UNKNOWN
  2. METHYLPREDNISOLONE [Concomitant]

REACTIONS (1)
  - SEPSIS [None]
